FAERS Safety Report 6417400-0 (Version None)
Quarter: 2009Q4

REPORT INFORMATION
  Report Type: 
  Country: None (occurrence: None)
  Receive Date: 20091026
  Receipt Date: 20090819
  Transmission Date: 20100525
  Serious: Yes (Death)
  Sender: FDA-Public Use
  Company Number: CTI_01060_2009

PATIENT
  Sex: Female

DRUGS (1)
  1. PORACTANT ALFA (CUROSURF) 1.5 ML SUSPENSION INTRATRACHEAL [Suspect]
     Indication: NEONATAL RESPIRATORY DISTRESS SYNDROME
     Dosage: (1.5 MG,  SUSPENSION INTRATRACHEAL)
     Route: 039
     Dates: start: 20090819, end: 20090819

REACTIONS (4)
  - PNEUMOTHORAX [None]
  - SEPSIS NEONATAL [None]
  - SKIN DISCOLOURATION [None]
  - SUBCUTANEOUS EMPHYSEMA [None]
